FAERS Safety Report 9633641 (Version 2)
Quarter: 2014Q2

REPORT INFORMATION
  Report Type: Spontaneous
  Country: US (occurrence: US)
  Receive Date: 20131021
  Receipt Date: 20140625
  Transmission Date: 20141212
  Serious: No
  Sender: FDA-Public Use
  Company Number: US-PFIZER INC-2013297391

PATIENT
  Sex: Male

DRUGS (6)
  1. DILANTIN-125 [Suspect]
     Dosage: UNK
  2. KEPPRA [Suspect]
     Dosage: UNK
  3. PROZAC [Suspect]
     Dosage: UNK
  4. DEPAKOTE [Suspect]
     Dosage: UNK
  5. PAXIL [Suspect]
     Dosage: UNK
  6. LAMICTAL [Suspect]
     Dosage: UNK

REACTIONS (1)
  - Drug hypersensitivity [Unknown]
